FAERS Safety Report 5629936-0 (Version None)
Quarter: 2008Q1

REPORT INFORMATION
  Report Type: 
  Country: None (occurrence: None)
  Receive Date: 20080218
  Receipt Date: 20080204
  Transmission Date: 20080703
  Serious: Yes (Death)
  Sender: FDA-Public Use
  Company Number: JP-ROCHE-542722

PATIENT
  Age: 68 Year
  Sex: Female

DRUGS (1)
  1. ROCEPHIN [Suspect]
     Route: 041

REACTIONS (2)
  - SHOCK [None]
  - THROMBOSIS [None]
